FAERS Safety Report 24401719 (Version 3)
Quarter: 2024Q4

REPORT INFORMATION
  Report Type: Report from Study
  Country: US (occurrence: US)
  Receive Date: 20241007
  Receipt Date: 20241126
  Transmission Date: 20250114
  Serious: Yes (Life-Threatening, Hospitalization)
  Sender: CSL BEHRING
  Company Number: US-BEH-2024167553

PATIENT
  Age: 79 Year
  Sex: Male
  Weight: 26.69 kg

DRUGS (1)
  1. ZEMAIRA [Suspect]
     Active Substance: .ALPHA.1-PROTEINASE INHIBITOR HUMAN
     Indication: Alpha-1 antitrypsin deficiency
     Dosage: (STRENGTH 1000)
     Route: 065

REACTIONS (6)
  - Gangrene [Unknown]
  - Fall [Unknown]
  - Therapy interrupted [Unknown]
  - Hospitalisation [Not Recovered/Not Resolved]
  - Therapy interrupted [Unknown]
  - Unevaluable event [Not Recovered/Not Resolved]
